FAERS Safety Report 25121056 (Version 1)
Quarter: 2025Q1

REPORT INFORMATION
  Report Type: Spontaneous
  Country: US (occurrence: US)
  Receive Date: 20250326
  Receipt Date: 20250326
  Transmission Date: 20250408
  Serious: No
  Sender: JOHNSON AND JOHNSON
  Company Number: US-JNJFOC-20250331449

PATIENT
  Age: 33 Year
  Sex: Female

DRUGS (1)
  1. TREMFYA [Suspect]
     Active Substance: GUSELKUMAB
     Indication: Psoriasis
     Dosage: THERAPY START: 11-MAR-2025
     Route: 065

REACTIONS (4)
  - Product storage error [Unknown]
  - Inappropriate schedule of product administration [Unknown]
  - Product label issue [Unknown]
  - Off label use [Unknown]

NARRATIVE: CASE EVENT DATE: 20250310
